FAERS Safety Report 15061131 (Version 1)
Quarter: 2018Q2

REPORT INFORMATION
  Report Type: Spontaneous
  Country: US (occurrence: US)
  Receive Date: 20180625
  Receipt Date: 20180625
  Transmission Date: 20180711
  Serious: No
  Sender: FDA-Public Use
  Company Number: US-ROCHE-2103116

PATIENT
  Sex: Male

DRUGS (1)
  1. XELODA [Suspect]
     Active Substance: CAPECITABINE
     Indication: PANCREATIC CARCINOMA
     Dosage: 2000 MG AM 1500 MG PM ;ONGOING: YES
     Route: 048
     Dates: start: 20180328

REACTIONS (4)
  - Burning sensation [Unknown]
  - Diarrhoea [Unknown]
  - Tenderness [Unknown]
  - Skin exfoliation [Unknown]
